FAERS Safety Report 22539193 (Version 1)
Quarter: 2023Q2

REPORT INFORMATION
  Report Type: Spontaneous
  Country: US (occurrence: US)
  Receive Date: 20230609
  Receipt Date: 20230609
  Transmission Date: 20230721
  Serious: No
  Sender: FDA-Public Use
  Company Number: US-AMGEN-USASP2023099113

PATIENT
  Age: 95 Year
  Sex: Female

DRUGS (16)
  1. OTEZLA [Suspect]
     Active Substance: APREMILAST
     Indication: Psoriatic arthropathy
     Dosage: 10, 20, 30 MG
     Route: 048
     Dates: start: 20230509
  2. OTEZLA [Suspect]
     Active Substance: APREMILAST
     Dosage: UNK UNK, QD
     Route: 048
  3. ACETAMINOPHEN [Concomitant]
     Active Substance: ACETAMINOPHEN
     Dosage: 325 MILLIGRAM
  4. DIGOXIN [Concomitant]
     Active Substance: DIGOXIN
     Dosage: 0.25 MILLIGRAM
  5. DILTIAZEM [Concomitant]
     Active Substance: DILTIAZEM
     Dosage: 180 MILLIGRAM
  6. FLOMAX [Concomitant]
     Active Substance: TAMSULOSIN HYDROCHLORIDE
     Dosage: 0.4 MILLIGRAM
  7. IRON [Concomitant]
     Active Substance: IRON
     Dosage: 325 MILLIGRAM
  8. LIDOCAINE [Concomitant]
     Active Substance: LIDOCAINE
  9. METOPROLOL [Concomitant]
     Active Substance: METOPROLOL
     Dosage: 25 MILLIGRAM
  10. PRAVASTATIN [Concomitant]
     Active Substance: PRAVASTATIN
     Dosage: 20 MILLIGRAM
  11. TRAMADOL [Concomitant]
     Active Substance: TRAMADOL
     Dosage: 50 MILLIGRAM
  12. VITAMIN B12 [Concomitant]
     Active Substance: CYANOCOBALAMIN
     Dosage: 1000 MICROGRAM
  13. VITAMIN D3 [Concomitant]
     Active Substance: CHOLECALCIFEROL
     Dosage: 50000 INTERNATIONAL UNIT
  14. XARELTO [Concomitant]
     Active Substance: RIVAROXABAN
     Dosage: 20 MILLIGRAM
  15. HYDROCODONE [Concomitant]
     Active Substance: HYDROCODONE
  16. APAP [Concomitant]
     Active Substance: ACETAMINOPHEN

REACTIONS (3)
  - Pain [Recovering/Resolving]
  - Bowel movement irregularity [Not Recovered/Not Resolved]
  - Diarrhoea [Not Recovered/Not Resolved]

NARRATIVE: CASE EVENT DATE: 20230501
